FAERS Safety Report 14672886 (Version 1)
Quarter: 2018Q1

REPORT INFORMATION
  Report Type: Spontaneous
  Country: US (occurrence: US)
  Receive Date: 20180323
  Receipt Date: 20180323
  Transmission Date: 20180509
  Serious: Yes (Hospitalization, Other)
  Sender: FDA-Public Use
  Company Number: US-AUROBINDO-AUR-APL-2018-015571

PATIENT
  Age: 66 Year
  Sex: Female

DRUGS (1)
  1. DEXAMETHASONE. [Suspect]
     Active Substance: DEXAMETHASONE
     Indication: SQUAMOUS CELL CARCINOMA OF LUNG
     Dosage: ()
     Route: 065

REACTIONS (3)
  - Haemoglobin decreased [Unknown]
  - Cytomegalovirus colitis [Unknown]
  - Gastric polyps [Unknown]
